FAERS Safety Report 23411000 (Version 1)
Quarter: 2024Q1

REPORT INFORMATION
  Report Type: Spontaneous
  Country: US (occurrence: US)
  Receive Date: 20240117
  Receipt Date: 20240117
  Transmission Date: 20240410
  Serious: No
  Sender: FDA-Public Use
  Company Number: US-SA-SAC20240112001312

PATIENT
  Age: 4 Year
  Sex: Male

DRUGS (2)
  1. ALTUVIIIO [Suspect]
     Active Substance: EFANESOCTOCOG ALFA
     Dosage: 800 IU, PRN
     Route: 065
  2. HEMLIBRA [Suspect]
     Active Substance: EMICIZUMAB-KXWH
     Dosage: UNK

REACTIONS (1)
  - Enuresis [Unknown]

NARRATIVE: CASE EVENT DATE: 20240103
